FAERS Safety Report 25460096 (Version 1)
Quarter: 2025Q2

REPORT INFORMATION
  Report Type: Report from Study
  Country: US (occurrence: US)
  Receive Date: 20250620
  Receipt Date: 20250620
  Transmission Date: 20250716
  Serious: Yes (Hospitalization, Other)
  Sender: ACADIA PHARMACEUTICALS
  Company Number: US-ACADIA PHARMACEUTICALS INC.-ACA-2025-PIM-007284

PATIENT
  Age: 75 Year
  Sex: Male

DRUGS (46)
  1. NUPLAZID [Suspect]
     Active Substance: PIMAVANSERIN TARTRATE
     Indication: Parkinson^s disease
     Dosage: 34 MILLIGRAM, QD
     Route: 048
  2. NUPLAZID [Suspect]
     Active Substance: PIMAVANSERIN TARTRATE
     Indication: Hallucination
  3. NUPLAZID [Suspect]
     Active Substance: PIMAVANSERIN TARTRATE
     Indication: Delusion
  4. DEXLANSOPRAZOLE [Concomitant]
     Active Substance: DEXLANSOPRAZOLE
  5. DULOXETINE HYDROCHLORIDE [Concomitant]
     Active Substance: DULOXETINE HYDROCHLORIDE
  6. ELIQUIS [Concomitant]
     Active Substance: APIXABAN
  7. GAVISCON EXTRA [Concomitant]
  8. METOPROLOL TARTRATE [Concomitant]
     Active Substance: METOPROLOL TARTRATE
  9. MONTELUKAST [Concomitant]
     Active Substance: MONTELUKAST
  10. MUCINEX [Concomitant]
     Active Substance: GUAIFENESIN
  11. NEURIVA SLEEP [Concomitant]
  12. PEPOGEST [Concomitant]
  13. ROSUVASTATIN [Concomitant]
     Active Substance: ROSUVASTATIN
  14. TAMSULOSIN [Concomitant]
     Active Substance: TAMSULOSIN
  15. VENTOLIN HFA [Concomitant]
     Active Substance: ALBUTEROL SULFATE
  16. XYZAL ALLERGY 24HR [Concomitant]
     Active Substance: LEVOCETIRIZINE DIHYDROCHLORIDE
  17. XIFAXAN [Concomitant]
     Active Substance: RIFAXIMIN
  18. JARDIANCE [Concomitant]
     Active Substance: EMPAGLIFLOZIN
  19. LANTUS SOLOSTAR [Concomitant]
     Active Substance: INSULIN GLARGINE
  20. NOVOLOG [Concomitant]
     Active Substance: INSULIN ASPART
  21. HUMALOG [Concomitant]
     Active Substance: INSULIN LISPRO
  22. ALBUTEROL SULFATE [Concomitant]
     Active Substance: ALBUTEROL SULFATE
  23. ALLOPURINOL [Concomitant]
     Active Substance: ALLOPURINOL
  24. AZELASTINE [Concomitant]
     Active Substance: AZELASTINE
  25. ACETAMINOPHEN\BUTALBITAL [Concomitant]
     Active Substance: ACETAMINOPHEN\BUTALBITAL
  26. CARAFATE [Concomitant]
     Active Substance: SUCRALFATE
  27. CLOBETASOL [Concomitant]
     Active Substance: CLOBETASOL
  28. DEXILANT [Concomitant]
     Active Substance: DEXLANSOPRAZOLE
  29. DICYCLOMINE [Concomitant]
     Active Substance: DICYCLOMINE HYDROCHLORIDE
  30. ATROPINE\DIPHENOXYLATE [Concomitant]
     Active Substance: ATROPINE\DIPHENOXYLATE
  31. DOXYCYCLINE HYCLATE [Concomitant]
     Active Substance: DOXYCYCLINE HYCLATE
  32. FLUTICASONE [Concomitant]
     Active Substance: FLUTICASONE
  33. GLIPIZIDE [Concomitant]
     Active Substance: GLIPIZIDE
  34. LEVOFLOXACIN [Concomitant]
     Active Substance: LEVOFLOXACIN
  35. LISINOPRIL [Concomitant]
     Active Substance: LISINOPRIL
  36. LOSARTAN [Concomitant]
     Active Substance: LOSARTAN
  37. NORCO [Concomitant]
     Active Substance: ACETAMINOPHEN\HYDROCODONE BITARTRATE
  38. ONDANSETRON [Concomitant]
     Active Substance: ONDANSETRON
  39. POLYETHYLENE GLYCOLS [Concomitant]
     Active Substance: POLYETHYLENE GLYCOLS
  40. PRAVACHOL [Concomitant]
     Active Substance: PRAVASTATIN SODIUM
  41. PROMETHAZINE [Concomitant]
     Active Substance: PROMETHAZINE HYDROCHLORIDE
  42. RANITIDINE [Concomitant]
     Active Substance: RANITIDINE
  43. SUCRALFATE [Concomitant]
     Active Substance: SUCRALFATE
  44. TIZANIDINE [Concomitant]
     Active Substance: TIZANIDINE
  45. TRAZODONE [Concomitant]
     Active Substance: TRAZODONE HYDROCHLORIDE
  46. VERAPAMIL [Concomitant]
     Active Substance: VERAPAMIL HYDROCHLORIDE

REACTIONS (4)
  - Cancer surgery [Unknown]
  - Sepsis [Unknown]
  - Infection [Unknown]
  - Gait disturbance [Unknown]

NARRATIVE: CASE EVENT DATE: 20250603
